FAERS Safety Report 6740452-5 (Version None)
Quarter: 2010Q2

REPORT INFORMATION
  Report Type: 
  Country: None (occurrence: None)
  Receive Date: 20100525
  Receipt Date: 20100427
  Transmission Date: 20101027
  Serious: No
  Sender: FDA-Public Use
  Company Number: US-ALLERGAN-1005512US

PATIENT
  Age: 34 Year
  Sex: Female

DRUGS (3)
  1. ACZONE [Suspect]
     Indication: ACNE
     Dosage: APPLY TWICE DAILY
  2. RETINOL [Concomitant]
  3. LOESTRIN FE 1/20 [Concomitant]

REACTIONS (1)
  - APPLICATION SITE DRYNESS [None]
